FAERS Safety Report 5875711-1 (Version None)
Quarter: 2008Q3

REPORT INFORMATION
  Report Type: 
  Country: None (occurrence: None)
  Receive Date: 20080905
  Receipt Date: 20080826
  Transmission Date: 20090109
  Serious: Yes (Hospitalization)
  Sender: FDA-Public Use
  Company Number: CAR-2008-035

PATIENT
  Age: 65 Year
  Sex: Female

DRUGS (2)
  1. SUCRALFATE [Suspect]
  2. SULFAMETHOXAZOLE + TRIMETHOPRIM [Suspect]

REACTIONS (6)
  - ATRIAL FIBRILLATION [None]
  - BLOOD PRESSURE DIASTOLIC DECREASED [None]
  - CARDIOTOXICITY [None]
  - DRUG INTERACTION [None]
  - ELECTROCARDIOGRAM QT PROLONGED [None]
  - SINUS BRADYCARDIA [None]
